FAERS Safety Report 5803607-X (Version None)
Quarter: 2008Q3

REPORT INFORMATION
  Report Type: 
  Country: None (occurrence: None)
  Receive Date: 20080703
  Receipt Date: 20080623
  Transmission Date: 20090109
  Serious: Yes (Hospitalization)
  Sender: FDA-Public Use
  Company Number: GXKR2008GB05781

PATIENT
  Age: 19 Year
  Sex: Male

DRUGS (1)
  1. PARACETAMOL (NGX) (PARACETAMOL) TABLET, 500MG [Suspect]
     Dosage: 70-80 DF, ORAL
     Route: 048

REACTIONS (15)
  - ABDOMINAL PAIN UPPER [None]
  - ACUTE HEPATIC FAILURE [None]
  - AGGRESSION [None]
  - BLOOD DISORDER [None]
  - CONFUSIONAL STATE [None]
  - CONJUNCTIVAL HAEMORRHAGE [None]
  - HEPATIC ENCEPHALOPATHY [None]
  - HEPATIC HAEMATOMA [None]
  - LOCALISED INTRAABDOMINAL FLUID COLLECTION [None]
  - NAUSEA [None]
  - OVERDOSE [None]
  - PURPURA [None]
  - SOMNOLENCE [None]
  - THROMBOCYTOPENIA [None]
  - ULTRASOUND SCAN ABNORMAL [None]
